FAERS Safety Report 4608915-6 (Version None)
Quarter: 2005Q1

REPORT INFORMATION
  Report Type: 
  Country: None (occurrence: None)
  Receive Date: 20050309
  Receipt Date: 20050221
  Transmission Date: 20050727
  Serious: No
  Sender: FDA-Public Use
  Company Number: 2005AC00380

PATIENT
  Age: 6 Year
  Sex: Female

DRUGS (10)
  1. MEROPENEM [Suspect]
     Indication: GRAFT VERSUS HOST DISEASE
  2. MEROPENEM [Suspect]
     Indication: INFECTION
  3. CYCLOSPORINE [Suspect]
     Indication: GRAFT VERSUS HOST DISEASE
  4. CYCLOSPORINE [Suspect]
     Indication: INFECTION
  5. CYCLOPHOSPHAMIDE [Suspect]
     Indication: GRAFT VERSUS HOST DISEASE
  6. CYCLOPHOSPHAMIDE [Suspect]
     Indication: INFECTION
  7. CEFEPIME [Suspect]
     Indication: GRAFT VERSUS HOST DISEASE
  8. CEFEPIME [Suspect]
     Indication: INFECTION
  9. MYCOPHENOLATE MOFETIL [Suspect]
     Indication: GRAFT VERSUS HOST DISEASE
  10. MYCOPHENOLATE MOFETIL [Suspect]
     Indication: INFECTION

REACTIONS (6)
  - DEPRESSED LEVEL OF CONSCIOUSNESS [None]
  - ELECTROENCEPHALOGRAM ABNORMAL [None]
  - EYE MOVEMENT DISORDER [None]
  - HYPERTENSION [None]
  - NYSTAGMUS [None]
  - REVERSIBLE POSTERIOR LEUKOENCEPHALOPATHY SYNDROME [None]
